FAERS Safety Report 7298851-1 (Version None)
Quarter: 2011Q1

REPORT INFORMATION
  Report Type: 
  Country: None (occurrence: None)
  Receive Date: 20110217
  Receipt Date: 20110207
  Transmission Date: 20110831
  Serious: Yes (Hospitalization)
  Sender: FDA-Public Use
  Company Number: IT-JNJFOC-20101007009

PATIENT
  Sex: Female
  Weight: 70 kg

DRUGS (3)
  1. ENBREL [Suspect]
     Indication: PSORIASIS
     Route: 058
  2. RAPTIVA [Suspect]
     Indication: PSORIASIS
     Route: 058
  3. STELARA [Suspect]
     Indication: PSORIASIS
     Route: 058

REACTIONS (1)
  - DIFFUSE LARGE B-CELL LYMPHOMA [None]
